FAERS Safety Report 9546625 (Version 2)
Quarter: 2013Q3

REPORT INFORMATION
  Report Type: Spontaneous
  Country: JP (occurrence: JP)
  Receive Date: 20130924
  Receipt Date: 20130924
  Transmission Date: 20140515
  Serious: Yes (Other)
  Sender: FDA-Public Use
  Company Number: JP-ROCHE-1270786

PATIENT
  Age: 71 Year
  Sex: Male

DRUGS (9)
  1. RITUXIMAB [Suspect]
     Indication: LYMPHOMA
     Route: 042
     Dates: start: 20130717, end: 20130813
  2. CYCLOPHOSPHAMIDE [Concomitant]
     Indication: LYMPHOMA
     Route: 065
     Dates: start: 20130718
  3. VINCRISTINE SULFATE [Concomitant]
     Indication: LYMPHOMA
     Dosage: 1.8 MG/1.0 MG DAILY
     Route: 042
     Dates: start: 20130718
  4. PREDNISOLONE [Concomitant]
     Indication: LYMPHOMA
     Route: 048
     Dates: start: 20130718
  5. DOXORUBICIN HYDROCHLORIDE [Concomitant]
     Indication: LYMPHOMA
     Dosage: 70 MG/50 MG DAILY
     Route: 042
     Dates: start: 20130718
  6. EXFORGE [Concomitant]
     Route: 048
     Dates: end: 20130730
  7. LEVOTHYROXINE [Concomitant]
     Dosage: 125 MCG/ 150 MCG DAILY
     Route: 048
     Dates: start: 20130711
  8. GASTER D [Concomitant]
     Route: 048
     Dates: start: 20130718, end: 20130816
  9. MIYA BM [Concomitant]
     Indication: DIARRHOEA
     Route: 048
     Dates: start: 20130719, end: 20130721

REACTIONS (1)
  - Hepatic function abnormal [Recovered/Resolved]
